FAERS Safety Report 9353374 (Version 1)
Quarter: 2013Q2

REPORT INFORMATION
  Report Type: Report from Study
  Country: CA (occurrence: CA)
  Receive Date: 20130618
  Receipt Date: 20130618
  Transmission Date: 20140414
  Serious: Yes (Other)
  Sender: FDA-Public Use
  Company Number: CA-JNJFOC-20130607974

PATIENT
  Sex: Male
  Weight: 59.5 kg

DRUGS (2)
  1. REMICADE [Suspect]
     Indication: CROHN^S DISEASE
     Route: 042
     Dates: start: 20130211
  2. PREDNISONE [Concomitant]
     Route: 065
     Dates: end: 2013

REACTIONS (2)
  - Joint swelling [Recovered/Resolved]
  - Crohn^s disease [Recovering/Resolving]
